FAERS Safety Report 7076414-0 (Version None)
Quarter: 2010Q4

REPORT INFORMATION
  Report Type: 
  Country: None (occurrence: None)
  Receive Date: 20101021
  Receipt Date: 20101012
  Transmission Date: 20110411
  Serious: Yes (Hospitalization)
  Sender: FDA-Public Use
  Company Number: WAES 1009USA00854

PATIENT
  Age: 75 Year
  Sex: Male

DRUGS (14)
  1. CAP VORINOSTAT [Suspect]
     Indication: MULTIPLE MYELOMA
     Dosage: 400 MG 300 MG
     Route: 048
     Dates: start: 20100802, end: 20100815
  2. CAP VORINOSTAT [Suspect]
     Indication: MULTIPLE MYELOMA
     Dosage: 400 MG 300 MG
     Route: 048
     Dates: start: 20100823, end: 20100829
  3. CAP VORINOSTAT [Suspect]
     Indication: MULTIPLE MYELOMA
     Dosage: 400 MG 300 MG
     Route: 048
     Dates: start: 20100831, end: 20100901
  4. BORTEZOMIB [Suspect]
     Indication: MULTIPLE MYELOMA
     Dosage: 2.5 MG/DAILY
     Route: 042
     Dates: start: 20090802
  5. BACTRIM [Concomitant]
  6. CALTRATE [Concomitant]
  7. MAXOLON [Concomitant]
  8. ASPIRIN [Concomitant]
  9. FAMCICLOVIR [Concomitant]
  10. LATANOPROST [Concomitant]
  11. LOPERAMIDE HCL [Concomitant]
  12. PAMIDRONATE DISODIUM [Concomitant]
  13. PANTOPRAZOLE [Concomitant]
  14. PERINDOPRIL [Concomitant]

REACTIONS (4)
  - ANAEMIA [None]
  - HYPERTENSION [None]
  - ORTHOSTATIC HYPOTENSION [None]
  - THROMBOCYTOPENIA [None]
